FAERS Safety Report 7744902-7 (Version None)
Quarter: 2011Q3

REPORT INFORMATION
  Report Type: 
  Country: None (occurrence: None)
  Receive Date: 20110913
  Receipt Date: 20100721
  Transmission Date: 20111222
  Serious: Yes (Other)
  Sender: FDA-Public Use
  Company Number: US-BAYER-201017503NA

PATIENT
  Age: 60 Year
  Sex: Male

DRUGS (1)
  1. BETASERON [Suspect]
     Indication: MULTIPLE SCLEROSIS
     Dosage: AS USED DOSE: UNK
     Route: 058
     Dates: start: 20100206, end: 20100206

REACTIONS (11)
  - OCULAR ICTERUS [None]
  - FATIGUE [None]
  - DIPLEGIA [None]
  - FALL [None]
  - LIVER DISORDER [None]
  - ASTHENIA [None]
  - NEUROGENIC BLADDER [None]
  - PAIN [None]
  - YELLOW SKIN [None]
  - SKELETAL INJURY [None]
  - URINARY RETENTION [None]
